FAERS Safety Report 8783853 (Version 1)
Quarter: 2012Q4

REPORT INFORMATION
  Report Type: Spontaneous
  Country: US (occurrence: None)
  Receive Date: 20120906
  Receipt Date: 20120906
  Transmission Date: 20130627
  Serious: Yes (Other)
  Sender: FDA-Public Use
  Company Number: None

PATIENT
  Age: 61 Year
  Sex: Female
  Weight: 65.77 kg

DRUGS (1)
  1. PROLIA [Suspect]
     Indication: OSTEOPENIA
     Dates: start: 20120720, end: 20120904

REACTIONS (3)
  - Pneumonia [None]
  - Injection site pain [None]
  - Gastrointestinal disorder [None]
